FAERS Safety Report 7961268-8 (Version None)
Quarter: 2011Q4

REPORT INFORMATION
  Report Type: 
  Country: None (occurrence: None)
  Receive Date: 20111202
  Receipt Date: 20111130
  Transmission Date: 20120403
  Serious: Yes (Life-Threatening)
  Sender: FDA-Public Use
  Company Number: 1022556-2011-00067

PATIENT
  Sex: Male

DRUGS (1)
  1. UNISOM [Suspect]
     Indication: INSOMNIA
     Dosage: 96, 25 MG TAB

REACTIONS (7)
  - SKIN WARM [None]
  - TACHYCARDIA [None]
  - SUICIDE ATTEMPT [None]
  - GRAND MAL CONVULSION [None]
  - DRUG SCREEN POSITIVE [None]
  - HYPERHIDROSIS [None]
  - DEPRESSED LEVEL OF CONSCIOUSNESS [None]
